FAERS Safety Report 9272152 (Version 1)
Quarter: 2013Q2

REPORT INFORMATION
  Report Type: Spontaneous
  Country: US (occurrence: US)
  Receive Date: 20130506
  Receipt Date: 20130506
  Transmission Date: 20140414
  Serious: No
  Sender: FDA-Public Use
  Company Number: US-009507513-1305USA000930

PATIENT
  Age: 81 Year
  Sex: Female

DRUGS (3)
  1. ZETIA [Suspect]
     Indication: BLOOD CHOLESTEROL INCREASED
     Dosage: 10 MG, ONCE DAILY
     Route: 048
     Dates: start: 2005
  2. ZETIA [Suspect]
     Indication: BLOOD TRIGLYCERIDES INCREASED
  3. [THERAPY UNSPECIFIED] [Concomitant]

REACTIONS (1)
  - Drug ineffective [Unknown]
